FAERS Safety Report 9417779 (Version 1)
Quarter: 2013Q3

REPORT INFORMATION
  Report Type: Spontaneous
  Country: FR (occurrence: FR)
  Receive Date: 20130724
  Receipt Date: 20130724
  Transmission Date: 20140515
  Serious: Yes (Hospitalization)
  Sender: FDA-Public Use
  Company Number: FR-GLAXOSMITHKLINE-B0908280A

PATIENT
  Age: 56 Year
  Sex: Male

DRUGS (1)
  1. MALARONE [Suspect]
     Indication: MALARIA PROPHYLAXIS
     Route: 048
     Dates: start: 20130515, end: 20130527

REACTIONS (4)
  - Erythema [Recovering/Resolving]
  - Rash vesicular [Recovering/Resolving]
  - Eosinophilia [Recovering/Resolving]
  - Toxic skin eruption [Recovering/Resolving]
